FAERS Safety Report 11098277 (Version 4)
Quarter: 2023Q1

REPORT INFORMATION
  Report Type: Report from Study
  Country: US (occurrence: US)
  Receive Date: 20150507
  Receipt Date: 20230207
  Transmission Date: 20230418
  Serious: Yes (Other)
  Sender: FDA-Public Use
  Company Number: US-JAZZ-2015-US-006431

PATIENT
  Age: 37 Year
  Sex: Female
  Weight: 63.492 kg

DRUGS (6)
  1. XYREM [Suspect]
     Active Substance: SODIUM OXYBATE
     Indication: Narcolepsy
     Dosage: 2.25 GRAM, BID
     Route: 048
     Dates: start: 200903, end: 2009
  2. XYREM [Suspect]
     Active Substance: SODIUM OXYBATE
     Indication: Cataplexy
     Dosage: 3 GRAM, BID
     Route: 048
     Dates: start: 201204, end: 2014
  3. XYREM [Suspect]
     Active Substance: SODIUM OXYBATE
     Indication: Somnolence
     Dosage: 3 GRAM, BID
     Route: 048
     Dates: start: 201408
  4. XYREM [Suspect]
     Active Substance: SODIUM OXYBATE
     Dosage: 4 GRAM, BID
     Route: 048
     Dates: end: 201504
  5. XYREM [Suspect]
     Active Substance: SODIUM OXYBATE
     Dosage: 1.875 GRAM, BID
     Route: 048
  6. Prenatal vitamins tablets [Concomitant]
     Indication: Product used for unknown indication
     Dosage: UNK
     Dates: start: 20140805

REACTIONS (9)
  - Facial bones fracture [Unknown]
  - Ligament sprain [Recovering/Resolving]
  - Foot fracture [Unknown]
  - Eye injury [Unknown]
  - Gastric disorder [Unknown]
  - Hypotension [Unknown]
  - Peripheral swelling [Recovering/Resolving]
  - Fall [Recovered/Resolved]
  - Depression [Unknown]

NARRATIVE: CASE EVENT DATE: 20150401
